FAERS Safety Report 17996205 (Version 1)
Quarter: 2020Q3

REPORT INFORMATION
  Report Type: Spontaneous
  Country: GR (occurrence: GR)
  Receive Date: 20200708
  Receipt Date: 20200708
  Transmission Date: 20201103
  Serious: Yes (Other)
  Sender: FDA-Public Use
  Company Number: GR-AMGEN-GRCSP2020106515

PATIENT
  Age: 61 Year
  Sex: Female

DRUGS (4)
  1. COPANLISIB. [Concomitant]
     Active Substance: COPANLISIB
     Indication: BREAST CANCER METASTATIC
  2. XGEVA [Suspect]
     Active Substance: DENOSUMAB
     Indication: METASTASES TO BONE
     Dosage: UNK
     Route: 065
     Dates: start: 201712
  3. EXEMESTANE. [Concomitant]
     Active Substance: EXEMESTANE
  4. PALBOCICLIB [Concomitant]
     Active Substance: PALBOCICLIB

REACTIONS (6)
  - Metastases to bone [Unknown]
  - General physical health deterioration [Recovering/Resolving]
  - Pyrexia [Recovered/Resolved]
  - Cough [Recovered/Resolved]
  - Acquired gene mutation [Unknown]
  - Metastases to liver [Recovering/Resolving]

NARRATIVE: CASE EVENT DATE: 2018
